FAERS Safety Report 7080331-X (Version None)
Quarter: 2010Q4

REPORT INFORMATION
  Report Type: 
  Country: None (occurrence: None)
  Receive Date: 20101103
  Receipt Date: 20101027
  Transmission Date: 20110411
  Serious: Yes (Death, Other)
  Sender: FDA-Public Use
  Company Number: US-SHIRE-ALL1-2010-05598

PATIENT
  Age: 56 Year
  Sex: Female

DRUGS (1)
  1. FOSRENOL [Suspect]
     Indication: HYPERPHOSPHATAEMIA
     Dosage: 500 MG TABLETS, ONE WITH MEALS, OTHER
     Route: 048
     Dates: start: 20100101, end: 20100807

REACTIONS (3)
  - DEATH [None]
  - FALL [None]
  - NECK INJURY [None]
